FAERS Safety Report 19987752 (Version 1)
Quarter: 2021Q4

REPORT INFORMATION
  Report Type: Other
  Country: NP (occurrence: NP)
  Receive Date: 20211022
  Receipt Date: 20211022
  Transmission Date: 20220303
  Serious: Yes (Hospitalization)
  Sender: FDA-Public Use
  Company Number: NP-INVATECH-000142

PATIENT
  Age: 2 Year
  Sex: Male

DRUGS (10)
  1. CALCITRIOL [Suspect]
     Active Substance: CALCITRIOL
     Indication: Hereditary hypophosphataemic rickets
     Dosage: 0.5 MCG/DAY, ORALLY
     Route: 048
  2. CALCIUM [Suspect]
     Active Substance: CALCIUM
     Indication: Hereditary hypophosphataemic rickets
     Dosage: 1.5 G/DAY, ORAL
     Route: 048
  3. VITAMIN D [Suspect]
     Active Substance: VITAMIN D NOS
     Indication: Hereditary hypophosphataemic rickets
     Dosage: 150000 IU, SINGLE DOSE
  4. CALCITRIOL [Suspect]
     Active Substance: CALCITRIOL
     Indication: Hereditary hypophosphataemic rickets
     Dosage: 1 MCG/DAY, ORALLY
     Route: 048
  5. CALCITRIOL [Suspect]
     Active Substance: CALCITRIOL
     Indication: Hereditary hypophosphataemic rickets
     Dosage: 2.25 MCG/DAY, ORALLY
     Route: 048
  6. CALCITRIOL [Suspect]
     Active Substance: CALCITRIOL
     Indication: Hereditary hypophosphataemic rickets
     Dosage: 3 MCG/DAY, ORALLY
     Route: 048
  7. CALCIUM [Suspect]
     Active Substance: CALCIUM
     Indication: Hereditary hypophosphataemic rickets
     Dosage: 3 G/DAY, ORAL
     Route: 048
  8. CALCIUM [Suspect]
     Active Substance: CALCIUM
     Indication: Hereditary hypophosphataemic rickets
     Dosage: 4 G/DAY, ORAL
     Route: 048
  9. CALCIUM [Suspect]
     Active Substance: CALCIUM
     Indication: Hereditary hypophosphataemic rickets
     Dosage: 7 G/DAY, ORAL
     Route: 048
  10. VITAMIN D [Suspect]
     Active Substance: VITAMIN D NOS
     Indication: Hereditary hypophosphataemic rickets
     Dosage: 3500 IU/DAY

REACTIONS (3)
  - Treatment failure [Unknown]
  - Drug resistance [Unknown]
  - Blood 1,25-dihydroxycholecalciferol increased [Unknown]
